FAERS Safety Report 18139260 (Version 1)
Quarter: 2020Q3

REPORT INFORMATION
  Report Type: Spontaneous
  Country: CA (occurrence: CA)
  Receive Date: 20200812
  Receipt Date: 20200812
  Transmission Date: 20201103
  Serious: Yes (Hospitalization)
  Sender: FDA-Public Use
  Company Number: CA-ACCORD-195086

PATIENT
  Age: 66 Year
  Sex: Female

DRUGS (15)
  1. FAMOTIDINE. [Concomitant]
     Active Substance: FAMOTIDINE
  2. FOLATE SODIUM/FOLIC ACID [Concomitant]
     Active Substance: FOLIC ACID
  3. ASCORBIC ACID. [Concomitant]
     Active Substance: ASCORBIC ACID
  4. ERGOCALCIFEROL. [Concomitant]
     Active Substance: ERGOCALCIFEROL
  5. BACLOFEN. [Concomitant]
     Active Substance: BACLOFEN
  6. ALENDRONIC ACID [Concomitant]
     Active Substance: ALENDRONIC ACID
  7. GABAPENTIN. [Concomitant]
     Active Substance: GABAPENTIN
  8. ASCORBIC ACID/CALCIUM PANTOTHENATE/CYANOCOBALAMIN/NICOTINAMIDE/PYRIDOXINE HYDROCHLORIDE/RIBOFLAVIN/T [Concomitant]
  9. VITAMINS NOS [Concomitant]
     Active Substance: VITAMINS
  10. TOCOPHEROL [Concomitant]
     Active Substance: TOCOPHEROL
  11. TOPIRAMATE. [Suspect]
     Active Substance: TOPIRAMATE
     Indication: MIGRAINE PROPHYLAXIS
     Route: 048
  12. CALCIUM CARBONATE/CALCIUM LACTOGLUCONATE [Concomitant]
     Active Substance: CALCIUM CARBONATE\CALCIUM LACTATE GLUCONATE
  13. FISH OIL [Concomitant]
     Active Substance: FISH OIL
  14. DULOXETINE. [Concomitant]
     Active Substance: DULOXETINE
  15. LANSOPRAZOLE. [Concomitant]
     Active Substance: LANSOPRAZOLE

REACTIONS (3)
  - Ureteric obstruction [Unknown]
  - Ureterolithiasis [Unknown]
  - Urosepsis [Unknown]
